FAERS Safety Report 8514449 (Version 3)
Quarter: 2012Q4

REPORT INFORMATION
  Report Type: Report from Study
  Country: CA (occurrence: CA)
  Receive Date: 20120416
  Receipt Date: 20121226
  Transmission Date: 20130627
  Serious: Yes (Other)
  Sender: FDA-Public Use
  Company Number: CA-ABBOTT-12P-028-0925108-00

PATIENT
  Age: 77 Year
  Sex: Male
  Weight: 65.83 kg

DRUGS (3)
  1. LUPRON DEPOT 30 MG [Suspect]
     Indication: PROSTATE CANCER
     Dates: start: 20110818
  2. RAMIPRIL [Concomitant]
     Indication: HYPERTENSION
     Route: 048
  3. RAMIPRIL [Concomitant]
     Dosage: Recently increased to 10mg
     Route: 048

REACTIONS (5)
  - Lung neoplasm malignant [Unknown]
  - Lung infection [Unknown]
  - Respiratory tract congestion [Unknown]
  - Blood pressure increased [Unknown]
  - Stress [Unknown]
